FAERS Safety Report 9404104 (Version 1)
Quarter: 2013Q3

REPORT INFORMATION
  Report Type: Spontaneous
  Country: US (occurrence: None)
  Receive Date: 20130716
  Receipt Date: 20130716
  Transmission Date: 20140515
  Serious: No
  Sender: FDA-Public Use
  Company Number: None

PATIENT
  Age: 57 Year
  Sex: Female
  Weight: 74.84 kg

DRUGS (2)
  1. OXYCODONE HCL [Suspect]
     Indication: RHEUMATOID ARTHRITIS
     Route: 048
     Dates: start: 20000301, end: 20130715
  2. OXYCODONE HCL [Suspect]
     Indication: FIBROMYALGIA
     Route: 048
     Dates: start: 20000301, end: 20130715

REACTIONS (1)
  - Drug ineffective [None]
